FAERS Safety Report 13944461 (Version 1)
Quarter: 2017Q3

REPORT INFORMATION
  Report Type: Spontaneous
  Country: US (occurrence: US)
  Receive Date: 20170907
  Receipt Date: 20170907
  Transmission Date: 20171128
  Serious: Yes (Other)
  Sender: FDA-Public Use
  Company Number: US-ROCHE-1283349

PATIENT
  Age: 22 Year
  Sex: Female

DRUGS (2)
  1. RITUXAN [Suspect]
     Active Substance: RITUXIMAB
     Indication: VASCULITIS
  2. RITUXAN [Suspect]
     Active Substance: RITUXIMAB
     Indication: GRANULOMA
     Dosage: ONE TIME DOSE
     Route: 065
     Dates: start: 20130708

REACTIONS (4)
  - Erythema [Recovered/Resolved]
  - Throat irritation [Recovered/Resolved]
  - Pharyngeal oedema [Recovered/Resolved]
  - Urticaria [Recovered/Resolved]

NARRATIVE: CASE EVENT DATE: 20130708
